FAERS Safety Report 12272739 (Version 8)
Quarter: 2018Q1

REPORT INFORMATION
  Report Type: Spontaneous
  Country: US (occurrence: US)
  Receive Date: 20160415
  Receipt Date: 20180219
  Transmission Date: 20180508
  Serious: No
  Sender: FDA-Public Use
  Company Number: US-PFIZER INC-2016165303

PATIENT
  Age: 70 Year
  Sex: Male
  Weight: 95.69 kg

DRUGS (60)
  1. LYRICA [Suspect]
     Active Substance: PREGABALIN
     Dosage: 150 MG, THRICE DAILY
     Route: 048
     Dates: end: 2017
  2. LYRICA [Suspect]
     Active Substance: PREGABALIN
     Dosage: 300 MG, THRICE DAILY
     Route: 048
     Dates: start: 2017, end: 2017
  3. LYRICA [Suspect]
     Active Substance: PREGABALIN
     Dosage: 150 MG, THRICE DAILY
     Route: 048
  4. GLUCOPHAGE XR [Concomitant]
     Active Substance: METFORMIN HYDROCHLORIDE
     Indication: TYPE 2 DIABETES MELLITUS
     Dosage: 1000 MG, 2X/DAY
     Route: 048
  5. DESYREL [Concomitant]
     Active Substance: TRAZODONE HYDROCHLORIDE
     Indication: SLEEP DISORDER
     Dosage: 300 MG, 1X/DAY (AT BEDTIME)
  6. ATARAX [Concomitant]
     Active Substance: HYDROXYZINE HYDROCHLORIDE
     Indication: ANXIETY
     Dosage: 25 MG, AS NEEDED (EVERY 8 HOURS IF NEEDED)
     Route: 048
  7. ARTIFICIAL TEARS [Concomitant]
     Active Substance: GLYCERIN\HYPROMELLOSES\POLYETHYLENE GLYCOL 400
     Indication: DRY EYE
     Dosage: 2 GTT, 4X/DAY
     Route: 047
  8. LYRICA [Suspect]
     Active Substance: PREGABALIN
     Indication: DIABETIC NEUROPATHY
     Dosage: 50 MG, THRICE DAILY
     Route: 048
  9. NITROSTAT [Concomitant]
     Active Substance: NITROGLYCERIN
     Indication: CORONARY ARTERY DISEASE
  10. REQUIP [Concomitant]
     Active Substance: ROPINIROLE HYDROCHLORIDE
     Indication: RESTLESS LEGS SYNDROME
     Dosage: 4 MG, 3X/DAY
     Route: 048
  11. CALCIUM 500+D [Concomitant]
     Active Substance: CALCIUM\VITAMIN D
     Dosage: 1 DF, 2X/DAY (WITH MEALS)
     Route: 048
  12. ECOTRIN [Concomitant]
     Active Substance: ASPIRIN
     Indication: OSTEOARTHRITIS
     Dosage: 325 MG, 1X/DAY (FOR 1 WEEK)
     Route: 048
  13. ECOTRIN [Concomitant]
     Active Substance: ASPIRIN
     Dosage: 81 MG, 1X/DAY
     Route: 048
  14. ECOTRIN [Concomitant]
     Active Substance: ASPIRIN
     Dosage: 81 MG, DAILY
  15. VITAMIN B12 [Concomitant]
     Active Substance: CYANOCOBALAMIN
     Indication: METABOLIC SURGERY
     Dosage: 1 ML, EVERY 4 WEEKS
     Route: 058
  16. VITAMIN B12 [Concomitant]
     Active Substance: CYANOCOBALAMIN
     Indication: VITAMIN B12 DEFICIENCY
     Dosage: 1000MCG/ML INJECTION ONE SHOT EVERY 4 WEEKS OR ONCE A MONTH
  17. PRILOSEC [Concomitant]
     Active Substance: OMEPRAZOLE MAGNESIUM
     Dosage: 20 MG, UNK (BEFOR MEALS)
  18. AMBIEN [Concomitant]
     Active Substance: ZOLPIDEM TARTRATE
     Dosage: 5 MG, AT BED TIME AS NEEDED
     Route: 048
  19. TYLENOL EXTRA STRENGTH [Concomitant]
     Active Substance: ACETAMINOPHEN
     Indication: PAIN
  20. ZYLOPRIM [Concomitant]
     Active Substance: ALLOPURINOL
     Dosage: 300 MG, DAILY
  21. DITROPAN [Concomitant]
     Active Substance: OXYBUTYNIN CHLORIDE
     Indication: HYPERTONIC BLADDER
     Dosage: 15 MG, 1X/DAY
     Route: 048
  22. DITROPAN [Concomitant]
     Active Substance: OXYBUTYNIN CHLORIDE
     Dosage: 15 MG, DAILY
  23. SYSTANE (HYPROMELLOSE 2910 (4000 MPA.S)) [Concomitant]
     Active Substance: HYPROMELLOSE 2910 (4000 MPA.S)
     Dosage: 2 GTT, 2X/DAY (0.4-0.3%)
     Route: 047
  24. LASIX [Concomitant]
     Active Substance: FUROSEMIDE
     Dosage: 40 MG, 1X/DAY (IN MORNING)
  25. CALCIUM [Concomitant]
     Active Substance: CALCIUM
     Indication: METABOLIC SURGERY
     Dosage: UNK UNK, 2X/DAY(500 MG PLUS D TWO TIMES A DAY WITH MEALS)
  26. ACULAR LS [Concomitant]
     Active Substance: KETOROLAC TROMETHAMINE
     Indication: SKIN ABRASION
  27. NORVASC [Concomitant]
     Active Substance: AMLODIPINE BESYLATE
     Indication: HYPERTENSION
     Dosage: 10 MG, 1X/DAY
     Route: 048
  28. VITAMIN D3 [Concomitant]
     Active Substance: CHOLECALCIFEROL
     Indication: VITAMIN D DEFICIENCY
     Dosage: 2000 IU, 1X/DAY
     Route: 048
  29. PROZAC [Concomitant]
     Active Substance: FLUOXETINE HYDROCHLORIDE
     Indication: MAJOR DEPRESSION
     Dosage: 60 MG, 1X/DAY (AT BEDTIME)
  30. ATIVAN [Concomitant]
     Active Substance: LORAZEPAM
     Dosage: 0.5 MG, EVERY 6 HOURS AS NEEDED
     Route: 048
  31. PRILOSEC [Concomitant]
     Active Substance: OMEPRAZOLE MAGNESIUM
     Indication: GASTROOESOPHAGEAL REFLUX DISEASE
     Dosage: 20 MG, 2X/DAY (BEFORE MEALS)
     Route: 048
  32. OSCAL D [Concomitant]
     Active Substance: CALCIUM CARBONATE\CHOLECALCIFEROL
     Dosage: 1 DF (500 MG/200 IU), 2X/DAY WITH MEALS
     Route: 048
  33. NEURONTIN [Concomitant]
     Active Substance: GABAPENTIN
     Dosage: 300 MG, 3X/DAY
     Route: 048
  34. CORTISPORIN OTIC [Concomitant]
     Dosage: UNK, 3X/DAY (APPLY THREE TIMES DAILY TO AFFECTED EAR(S))
  35. SYSTANE (HYPROMELLOSE 2910 (4000 MPA.S)) [Concomitant]
     Active Substance: HYPROMELLOSE 2910 (4000 MPA.S)
     Dosage: 1 GTT, 2X/DAY
     Route: 047
  36. ALDACTONE [Concomitant]
     Active Substance: SPIRONOLACTONE
     Indication: DIABETES MELLITUS
     Dosage: 25 MG, 1X/DAY
     Route: 048
  37. ALDACTONE [Concomitant]
     Active Substance: SPIRONOLACTONE
     Indication: ESSENTIAL HYPERTENSION
  38. DESYREL [Concomitant]
     Active Substance: TRAZODONE HYDROCHLORIDE
     Dosage: 200 MG, 1X/DAY (AT BEDTIME)
     Route: 048
  39. METFORMIN [Concomitant]
     Active Substance: METFORMIN HYDROCHLORIDE
     Indication: DIABETES MELLITUS
     Dosage: 1000 MG, DAILY
     Route: 048
  40. OXYBUTYNIN. [Concomitant]
     Active Substance: OXYBUTYNIN CHLORIDE
     Dosage: 50 MG, 1X/DAY
  41. PRAVACHOL [Concomitant]
     Active Substance: PRAVASTATIN SODIUM
     Indication: TYPE IIA HYPERLIPIDAEMIA
     Dosage: 10 MG, 1X/DAY(10 MG ONE TABLET AT BEDTIME)
     Route: 048
  42. HYDRALAZINE [Concomitant]
     Active Substance: HYDRALAZINE HYDROCHLORIDE
     Indication: HYPERTENSION
     Dosage: 50 MG, 3X/DAY (MORNING NOON AND EVENING)
  43. FLOMAX [Concomitant]
     Active Substance: TAMSULOSIN HYDROCHLORIDE
     Dosage: 0.4 MG, 1X/DAY (HS)
     Route: 048
  44. JANUVIA [Concomitant]
     Active Substance: SITAGLIPTIN PHOSPHATE
     Indication: TYPE 2 DIABETES MELLITUS
     Dosage: 100 MG, 1X/DAY
     Route: 048
  45. LYRICA [Suspect]
     Active Substance: PREGABALIN
     Dosage: 450 MG, THRICE DAILY (THREE 150 MG CAPSULES)
     Dates: start: 2017
  46. NORVASC [Concomitant]
     Active Substance: AMLODIPINE BESYLATE
     Indication: ESSENTIAL HYPERTENSION
     Dosage: 5 MG, 1X/DAY
  47. VITAMIN B12 [Concomitant]
     Active Substance: CYANOCOBALAMIN
     Dosage: 1 ML, UNK (EVERY 4 WEEKS)
     Route: 030
  48. PROZAC [Concomitant]
     Active Substance: FLUOXETINE HYDROCHLORIDE
     Dosage: 40 MG, 1X/DAY (HS)
  49. DESYREL [Concomitant]
     Active Substance: TRAZODONE HYDROCHLORIDE
     Indication: MAJOR DEPRESSION
     Dosage: 150 MG, 1X/DAY (AT BEDTIME)
  50. TRETINOIN. [Concomitant]
     Active Substance: TRETINOIN
     Dosage: 0.1 %, 1X/DAY
     Route: 061
  51. METFORMIN [Concomitant]
     Active Substance: METFORMIN HYDROCHLORIDE
     Dosage: 1000 MG, 2X/DAY
     Route: 048
  52. ACULAR LS [Concomitant]
     Active Substance: KETOROLAC TROMETHAMINE
     Indication: PAIN
     Dosage: 1 GTT, AS NEEDED (4 TIMES DAILY AS NEEDED)
     Route: 047
  53. ZYLOPRIM [Concomitant]
     Active Substance: ALLOPURINOL
     Indication: GOUT
     Dosage: 300 MG, 1X/DAY
     Route: 048
  54. TEARS NATURALE II /06129701/ [Concomitant]
     Dosage: 1 GTT, 4X/DAY (BOTH EYES)
     Route: 047
  55. APRESOLINE HYDROCHLORIDE [Concomitant]
     Active Substance: HYDRALAZINE HYDROCHLORIDE
     Indication: ESSENTIAL HYPERTENSION
     Dosage: 50 MG, 2X/DAY
  56. NITROSTAT [Concomitant]
     Active Substance: NITROGLYCERIN
     Indication: CHEST PAIN
     Dosage: 0.4 MG, AS NEEDED (PLACE 1 TABLET UNDER THE TONGUE EVERY 5 MINUTES IF NEEDED)
     Route: 060
  57. FLUOXETINE [Concomitant]
     Active Substance: FLUOXETINE HYDROCHLORIDE
     Indication: ANXIETY
     Dosage: 40 MG, 1X/DAY (AT BEDTIME)
  58. ASPIRIN. [Concomitant]
     Active Substance: ASPIRIN
     Indication: ANTICOAGULANT THERAPY
     Dosage: 325 MG, 1X/DAY(AT NIGHT)
  59. ERYTHROMYCIN. [Concomitant]
     Active Substance: ERYTHROMYCIN
     Indication: SKIN ABRASION
     Dosage: UNK (PLACE 1 STRIP INTO LEFT EYE 6 TIMES DAILY)
     Route: 047
  60. TYLENOL EXTRA STRENGTH [Concomitant]
     Active Substance: ACETAMINOPHEN
     Indication: OSTEOARTHRITIS
     Dosage: 1000 MG, AS NEEDED (2 TABLETS BY MOUTH 3 TIMES DAILY IF NEEDED. MAX ACETAMINOPHEN DOSE:4000MG IN 24)
     Route: 048

REACTIONS (10)
  - Overdose [Unknown]
  - Drug ineffective [Unknown]
  - Paraesthesia [Unknown]
  - Feeling abnormal [Unknown]
  - Gait disturbance [Unknown]
  - Dyspnoea [Unknown]
  - Intentional product use issue [Unknown]
  - Pain [Unknown]
  - Muscle spasms [Not Recovered/Not Resolved]
  - Insomnia [Not Recovered/Not Resolved]

NARRATIVE: CASE EVENT DATE: 2017
